FAERS Safety Report 17925228 (Version 3)
Quarter: 2020Q3

REPORT INFORMATION
  Report Type: Report from Study
  Country: US (occurrence: US)
  Receive Date: 20200622
  Receipt Date: 20200709
  Transmission Date: 20201103
  Serious: Yes (Other)
  Sender: FDA-Public Use
  Company Number: US-ASTELLAS-2020US020890

PATIENT
  Age: 84 Year
  Sex: Male

DRUGS (1)
  1. ENZALUTAMIDE [Suspect]
     Active Substance: ENZALUTAMIDE
     Indication: PROSTATE CANCER
     Route: 048
     Dates: start: 20200321, end: 20200701

REACTIONS (4)
  - Cough [Not Recovered/Not Resolved]
  - Foreign body in throat [Unknown]
  - Product use complaint [Unknown]
  - Underdose [Unknown]

NARRATIVE: CASE EVENT DATE: 20200321
